FAERS Safety Report 14704266 (Version 1)
Quarter: 2018Q2

REPORT INFORMATION
  Report Type: Spontaneous
  Country: US (occurrence: US)
  Receive Date: 20180402
  Receipt Date: 20180402
  Transmission Date: 20180711
  Serious: No
  Sender: FDA-Public Use
  Company Number: US-ALLERGAN-1763240US

PATIENT
  Sex: Female

DRUGS (2)
  1. CANASA [Suspect]
     Active Substance: MESALAMINE
     Indication: PRODUCT USED FOR UNKNOWN INDICATION
     Dosage: UNK
     Route: 065
  2. CANASA [Suspect]
     Active Substance: MESALAMINE
     Dosage: UNK
     Route: 065

REACTIONS (5)
  - Product solubility abnormal [Unknown]
  - Product use complaint [Unknown]
  - Product physical consistency issue [Unknown]
  - Product outer packaging issue [Unknown]
  - Drug ineffective [Unknown]
